FAERS Safety Report 6628321-2 (Version None)
Quarter: 2010Q1

REPORT INFORMATION
  Report Type: 
  Country: None (occurrence: None)
  Receive Date: 20100311
  Receipt Date: 20100301
  Transmission Date: 20100710
  Serious: Yes (Hospitalization, Other)
  Sender: FDA-Public Use
  Company Number: JP-PFIZER INC-2010027234

PATIENT
  Age: 76 Year
  Sex: Male
  Weight: 66.5 kg

DRUGS (8)
  1. SUNITINIB MALATE [Suspect]
     Indication: METASTATIC RENAL CELL CARCINOMA
     Dosage: 50 MG, 1X/DAY
     Route: 048
     Dates: start: 20090817, end: 20090831
  2. MAINTATE [Concomitant]
     Dosage: UNK
     Route: 048
  3. IMIDAPRIL HYDROCHLORIDE [Concomitant]
     Dosage: UNK
     Route: 048
  4. CARDENALIN [Concomitant]
     Dosage: UNK
     Route: 048
  5. ADALAT CC [Concomitant]
     Dosage: UNK
     Route: 048
  6. OMEPRAL [Concomitant]
     Dosage: UNK
     Route: 048
  7. GASMOTIN [Concomitant]
     Dosage: UNK
     Route: 048
  8. VALSARTAN [Concomitant]
     Dosage: UNK
     Route: 048

REACTIONS (7)
  - DIZZINESS POSTURAL [None]
  - GASTROOESOPHAGEAL REFLUX DISEASE [None]
  - HAEMATEMESIS [None]
  - HYPERTENSION [None]
  - LUMBAR VERTEBRAL FRACTURE [None]
  - PLATELET COUNT DECREASED [None]
  - PROTEINURIA [None]
